FAERS Safety Report 8808918 (Version 2)
Quarter: 2012Q4

REPORT INFORMATION
  Report Type: 
  Country: US (occurrence: US)
  Receive Date: 20120926
  Receipt Date: 20121008
  Transmission Date: 20130627
  Serious: Yes (Other)
  Sender: FDA-Public Use
  Company Number: US-ASTELLAS-2012US007973

PATIENT
  Age: 90 Year
  Sex: Female

DRUGS (1)
  1. VESICARE [Suspect]
     Indication: URINARY INCONTINENCE
     Dosage: 5 mg, UID/QD
     Route: 048
     Dates: start: 20120402, end: 20120625

REACTIONS (2)
  - Drug ineffective [Unknown]
  - Pollakiuria [Recovering/Resolving]
